FAERS Safety Report 7273508-1 (Version None)
Quarter: 2011Q1

REPORT INFORMATION
  Report Type: 
  Country: None (occurrence: None)
  Receive Date: 20110203
  Receipt Date: 20110131
  Transmission Date: 20110831
  Serious: Yes (Life-Threatening, Hospitalization)
  Sender: FDA-Public Use
  Company Number: DE-PFIZER INC-2011021508

PATIENT
  Age: 69 Year
  Sex: Male

DRUGS (1)
  1. AMPICILLIN SODIUM AND SULBACTAM SODIUM [Suspect]

REACTIONS (1)
  - PANCYTOPENIA [None]
